FAERS Safety Report 5341852-0 (Version None)
Quarter: 2007Q2

REPORT INFORMATION
  Report Type: 
  Country: None (occurrence: None)
  Receive Date: 20070601
  Receipt Date: 20070522
  Transmission Date: 20071010
  Serious: Yes (Other)
  Sender: FDA-Public Use
  Company Number: HQWYE508222MAR07

PATIENT
  Sex: Female
  Weight: 49.94 kg

DRUGS (2)
  1. EFFEXOR XR [Suspect]
     Indication: DEPRESSION
     Route: 048
     Dates: start: 20061212, end: 20070216
  2. CLARINEX [Suspect]
     Indication: NASAL ULCER
     Dosage: UNKNOWN
     Dates: start: 20070125

REACTIONS (10)
  - BLINDNESS [None]
  - DRUG WITHDRAWAL SYNDROME [None]
  - HEADACHE [None]
  - MIGRAINE [None]
  - NASAL ULCER [None]
  - RETINAL HAEMORRHAGE [None]
  - RETINAL VASCULAR THROMBOSIS [None]
  - RETINAL VEIN OCCLUSION [None]
  - VISION BLURRED [None]
  - VISUAL DISTURBANCE [None]
